FAERS Safety Report 24396316 (Version 1)
Quarter: 2024Q4

REPORT INFORMATION
  Report Type: Spontaneous
  Country: CN (occurrence: CN)
  Receive Date: 20241004
  Receipt Date: 20241004
  Transmission Date: 20250115
  Serious: Yes (Hospitalization, Other)
  Sender: PFIZER
  Company Number: CN-PFIZER INC-PV202400124304

PATIENT
  Age: 17 Year
  Sex: Male
  Weight: 89.5 kg

DRUGS (10)
  1. CYTARABINE [Suspect]
     Active Substance: CYTARABINE
     Indication: Hodgkin^s disease
     Dosage: UNK
     Route: 065
     Dates: start: 20240802
  2. CYTARABINE [Suspect]
     Active Substance: CYTARABINE
     Dosage: UNK
     Route: 065
     Dates: start: 20240829
  3. CYTARABINE [Suspect]
     Active Substance: CYTARABINE
     Dosage: 4 G, 2X/DAY
     Route: 041
     Dates: start: 20240831
  4. ADCETRIS [Suspect]
     Active Substance: BRENTUXIMAB VEDOTIN
     Indication: Hodgkin^s disease
     Dosage: UNK
     Route: 065
     Dates: start: 20240802
  5. ADCETRIS [Suspect]
     Active Substance: BRENTUXIMAB VEDOTIN
     Dosage: 150 MG, 1X/DAY
     Route: 041
     Dates: start: 20240829
  6. CISPLATIN [Suspect]
     Active Substance: CISPLATIN
     Indication: Hodgkin^s disease
     Dosage: UNK
     Route: 065
     Dates: start: 20240802
  7. CISPLATIN [Suspect]
     Active Substance: CISPLATIN
     Dosage: UNK
     Route: 065
     Dates: start: 20240829
  8. CISPLATIN [Suspect]
     Active Substance: CISPLATIN
     Dosage: 200 MG, 1X/DAY
     Route: 041
     Dates: start: 20240830
  9. DEXAMETHASONE [Suspect]
     Active Substance: DEXAMETHASONE
     Indication: Hodgkin^s disease
     Dosage: UNK
     Route: 065
     Dates: start: 20240802
  10. DEXAMETHASONE [Suspect]
     Active Substance: DEXAMETHASONE
     Dosage: UNK
     Route: 065
     Dates: start: 20240829

REACTIONS (2)
  - Myelosuppression [Recovering/Resolving]
  - Agranulocytosis [Recovered/Resolved]

NARRATIVE: CASE EVENT DATE: 20240801
